FAERS Safety Report 11118166 (Version 2)
Quarter: 2015Q2

REPORT INFORMATION
  Report Type: Spontaneous
  Country: DE (occurrence: None)
  Receive Date: 20150514
  Receipt Date: 20150526
  Transmission Date: 20150821
  Serious: No
  Sender: FDA-Public Use
  Company Number: 1504DEU024469

PATIENT
  Age: 68 Year
  Sex: Female
  Weight: 70 kg

DRUGS (7)
  1. KEIMAX [Suspect]
     Active Substance: CEFTIBUTEN
     Indication: INFECTION
     Route: 048
     Dates: start: 20150401
  2. SOLEDUM (EUCALYPTOL) [Concomitant]
  3. RATIO-SALBUTAMOL HFA [Concomitant]
     Active Substance: ALBUTEROL SULFATE
     Indication: RESPIRATORY TRACT INFECTION
     Dosage: STRENGTH: 200 HUB; AS NEEDED
     Dates: start: 20150401
  4. ATORVASTATIN [Concomitant]
     Active Substance: ATORVASTATIN
  5. STANGYL (TRIMIPRAMINE MALEATE) [Concomitant]
  6. XARELTO [Concomitant]
     Active Substance: RIVAROXABAN
     Indication: ANTICOAGULANT THERAPY
     Route: 048
     Dates: start: 20150331, end: 20150401
  7. VOCADO HCT (AMLODIPINE BESYLATE, HYDROCHLOROTHIAZIDE, OLMESARTAN MEDOXOMIL) [Concomitant]

REACTIONS (5)
  - C-reactive protein increased [None]
  - Procedural complication [None]
  - Anosmia [None]
  - Haemorrhage [None]
  - Ageusia [None]

NARRATIVE: CASE EVENT DATE: 20150401
